FAERS Safety Report 9415636 (Version 2)
Quarter: 2013Q4

REPORT INFORMATION
  Report Type: Spontaneous
  Country: GB (occurrence: GB)
  Receive Date: 20130723
  Receipt Date: 20131104
  Transmission Date: 20140711
  Serious: Yes (Life-Threatening, Hospitalization)
  Sender: FDA-Public Use
  Company Number: PHHY2013GB076928

PATIENT
  Age: 39 Year
  Sex: Female
  Weight: 69.85 kg

DRUGS (5)
  1. ARIPIPRAZOLE [Suspect]
     Indication: OBSESSIVE-COMPULSIVE DISORDER
     Dosage: 5-10 MG, DAILY
     Route: 048
     Dates: start: 200805, end: 201306
  2. QUETIAPINE [Suspect]
     Indication: OBSESSIVE-COMPULSIVE DISORDER
     Dosage: 50 MG
     Route: 048
     Dates: start: 201106, end: 201304
  3. SERTRALINE [Concomitant]
     Dosage: 150 MG. QD
  4. LITHIUM CARBONATE [Concomitant]
     Dosage: 600 MG QD
  5. RISPERIDONE [Concomitant]

REACTIONS (2)
  - Pulmonary embolism [Recovered/Resolved]
  - Dyspnoea [Recovered/Resolved]
